FAERS Safety Report 24121579 (Version 3)
Quarter: 2024Q3

REPORT INFORMATION
  Report Type: Report from Study
  Country: AT (occurrence: AT)
  Receive Date: 20240722
  Receipt Date: 20240822
  Transmission Date: 20241016
  Serious: Yes (Death, Hospitalization)
  Sender: ABBVIE
  Company Number: AT-ABBVIE-5845693

PATIENT
  Age: 74 Year
  Sex: Male

DRUGS (3)
  1. CARBIDOPA\LEVODOPA [Suspect]
     Active Substance: CARBIDOPA\LEVODOPA
     Indication: Parkinson^s disease
     Dosage: MD 7,0 ML; CRT 6.8 ML/H; CRN 4,5 ML/H; ED 3 ML
     Route: 050
     Dates: start: 20200922
  2. CARBIDOPA\LEVODOPA [Suspect]
     Active Substance: CARBIDOPA\LEVODOPA
     Dosage: FIRST ADMIN DATE- 2024
     Route: 050
  3. CARBIDOPA\LEVODOPA [Suspect]
     Active Substance: CARBIDOPA\LEVODOPA
     Dosage: MD 7.0 ML; CR DAY-TIME 6.8 ML/H; CR NIGHT-TIME 4.5 ML/H; ED 3.0 ML
     Route: 050
     Dates: start: 20240717, end: 20240719

REACTIONS (5)
  - COVID-19 [Fatal]
  - Off label use [Recovered/Resolved]
  - Device dislocation [Unknown]
  - Dementia [Unknown]
  - Parkinson^s disease [Unknown]

NARRATIVE: CASE EVENT DATE: 20240717
